FAERS Safety Report 13792521 (Version 1)
Quarter: 2017Q3

REPORT INFORMATION
  Report Type: Spontaneous
  Country: US (occurrence: US)
  Receive Date: 20170725
  Receipt Date: 20170725
  Transmission Date: 20171127
  Serious: No
  Sender: FDA-Public Use
  Company Number: US-TESARO, INC.-US-2017TSO00670

PATIENT

DRUGS (3)
  1. ZEJULA [Suspect]
     Active Substance: NIRAPARIB
     Indication: OVARIAN CANCER
     Dosage: 300 MG, QD
     Route: 048
     Dates: start: 20170511, end: 20170518
  2. ZEJULA [Suspect]
     Active Substance: NIRAPARIB
     Dosage: 200 MG, QD
     Route: 048
     Dates: start: 20170519
  3. KEFLEX [Suspect]
     Active Substance: CEPHALEXIN
     Indication: PRODUCT USED FOR UNKNOWN INDICATION
     Dosage: UNK

REACTIONS (12)
  - Retching [Recovering/Resolving]
  - Malaise [Unknown]
  - Headache [Unknown]
  - Oral herpes [Unknown]
  - Pain [Unknown]
  - Asthenia [Unknown]
  - Insomnia [Unknown]
  - Constipation [Recovered/Resolved]
  - Nail infection [Unknown]
  - Abdominal pain upper [Unknown]
  - Crying [Unknown]
  - Dizziness [Unknown]

NARRATIVE: CASE EVENT DATE: 201705
